FAERS Safety Report 8176288-0 (Version None)
Quarter: 2012Q1

REPORT INFORMATION
  Report Type: 
  Country: None (occurrence: None)
  Receive Date: 20120301
  Receipt Date: 20120221
  Transmission Date: 20120608
  Serious: Yes (Other)
  Sender: FDA-Public Use
  Company Number: IL-BRISTOL-MYERS SQUIBB COMPANY-16426124

PATIENT
  Age: 59 Year

DRUGS (1)
  1. METFORMIN HCL [Suspect]

REACTIONS (2)
  - LEUKOCYTOCLASTIC VASCULITIS [None]
  - PNEUMONITIS [None]
